FAERS Safety Report 23741582 (Version 3)
Quarter: 2024Q2

REPORT INFORMATION
  Report Type: Report from Study
  Country: CO (occurrence: CO)
  Receive Date: 20240415
  Receipt Date: 20240626
  Transmission Date: 20240716
  Serious: Yes (Hospitalization, Other)
  Sender: FDA-Public Use
  Company Number: CO-JNJFOC-20240105768

PATIENT
  Age: 45 Year
  Sex: Male
  Weight: 69 kg

DRUGS (1)
  1. SIMPONI [Suspect]
     Active Substance: GOLIMUMAB
     Indication: Rheumatoid arthritis
     Dosage: LAST DRUG APPLICATION: 30-OCT-2: LAST DRUG APPLICATION: 10-JAN-2024
     Route: 058
     Dates: start: 20230831

REACTIONS (9)
  - Surgery [Not Recovered/Not Resolved]
  - Tendon rupture [Unknown]
  - Knee operation [Not Recovered/Not Resolved]
  - Eye operation [Unknown]
  - Procedural pain [Not Recovered/Not Resolved]
  - Asthenia [Not Recovered/Not Resolved]
  - Postoperative wound infection [Unknown]
  - Mobility decreased [Not Recovered/Not Resolved]
  - Arthritis [Not Recovered/Not Resolved]

NARRATIVE: CASE EVENT DATE: 20231001
